FAERS Safety Report 4795812-9 (Version None)
Quarter: 2005Q4

REPORT INFORMATION
  Report Type: 
  Country: None (occurrence: None)
  Receive Date: 20051007
  Receipt Date: 20050924
  Transmission Date: 20060501
  Serious: Yes (Hospitalization)
  Sender: FDA-Public Use
  Company Number: 2005132758

PATIENT
  Age: 84 Year
  Sex: Female
  Weight: 56.6996 kg

DRUGS (1)
  1. CALADRYL [Suspect]
     Indication: ARTHROPOD STING
     Dosage: ENOUGH TO COVER 1 SQUARE FOOT, ONCE , TOPICAL
     Route: 061
     Dates: start: 20050918, end: 20050918

REACTIONS (5)
  - ARTHROPOD STING [None]
  - BLOOD PRESSURE INCREASED [None]
  - BURNING SENSATION [None]
  - CONDITION AGGRAVATED [None]
  - LYMPHADENOPATHY [None]
